FAERS Safety Report 7657650-9 (Version None)
Quarter: 2011Q3

REPORT INFORMATION
  Report Type: 
  Country: None (occurrence: None)
  Receive Date: 20110804
  Receipt Date: 20110729
  Transmission Date: 20111222
  Serious: Yes (Other)
  Sender: FDA-Public Use
  Company Number: TN-ABBOTT-11P-160-0836179-00

PATIENT
  Age: 22 Year
  Sex: Female

DRUGS (1)
  1. ADALIMUMAB [Suspect]
     Indication: JUVENILE ARTHRITIS

REACTIONS (1)
  - HISTIOCYTOSIS HAEMATOPHAGIC [None]
